FAERS Safety Report 13205038 (Version 2)
Quarter: 2017Q1

REPORT INFORMATION
  Report Type: Spontaneous
  Country: JP (occurrence: JP)
  Receive Date: 20170209
  Receipt Date: 20170320
  Transmission Date: 20170428
  Serious: Yes (Hospitalization, Other)
  Sender: FDA-Public Use
  Company Number: JP-PFIZER INC-2017056649

PATIENT
  Age: 76 Year
  Sex: Female
  Weight: 42.2 kg

DRUGS (1)
  1. CEFTRIAXONE SODIUM PFIZER [Suspect]
     Active Substance: CEFTRIAXONE SODIUM
     Indication: PNEUMONIA
     Dosage: 2 G, 1X/DAY
     Route: 041
     Dates: start: 20170127, end: 20170205

REACTIONS (2)
  - Altered state of consciousness [Recovered/Resolved]
  - Dyskinesia [Recovered/Resolved]

NARRATIVE: CASE EVENT DATE: 20170206
